FAERS Safety Report 20229670 (Version 2)
Quarter: 2022Q1

REPORT INFORMATION
  Report Type: Spontaneous
  Country: AT (occurrence: None)
  Receive Date: 20211226
  Receipt Date: 20220204
  Transmission Date: 20220423
  Serious: Yes (Other)
  Sender: FDA-Public Use
  Company Number: AT-ROCHE-2959568

PATIENT
  Age: 36 Year
  Sex: Female

DRUGS (8)
  1. OBINUTUZUMAB [Suspect]
     Active Substance: OBINUTUZUMAB
     Indication: Diffuse large B-cell lymphoma
     Route: 042
  2. CYCLOPHOSPHAMIDE [Concomitant]
     Active Substance: CYCLOPHOSPHAMIDE
  3. DOXORUBICIN HYDROCHLORIDE [Concomitant]
     Active Substance: DOXORUBICIN HYDROCHLORIDE
  4. VINCRISTINE SULFATE [Concomitant]
     Active Substance: VINCRISTINE SULFATE
  5. PREDNISONE [Concomitant]
     Active Substance: PREDNISONE
  6. IFOSFAMIDE [Concomitant]
     Active Substance: IFOSFAMIDE
  7. CARBOPLATIN [Concomitant]
     Active Substance: CARBOPLATIN
  8. ETOPOSIDE PHOSPHATE [Concomitant]
     Active Substance: ETOPOSIDE PHOSPHATE

REACTIONS (3)
  - COVID-19 [Recovered/Resolved]
  - Disease progression [Unknown]
  - Neoplasm [Unknown]

NARRATIVE: CASE EVENT DATE: 20201201
